FAERS Safety Report 5359269-1 (Version None)
Quarter: 2007Q2

REPORT INFORMATION
  Report Type: 
  Country: None (occurrence: None)
  Receive Date: 20070615
  Receipt Date: 20070608
  Transmission Date: 20071010
  Serious: Yes (Death, Hospitalization)
  Sender: FDA-Public Use
  Company Number: DE-AMGEN-US219480

PATIENT
  Sex: Female
  Weight: 90 kg

DRUGS (14)
  1. ENBREL [Suspect]
     Indication: RHEUMATOID ARTHRITIS
     Route: 058
     Dates: start: 20060201, end: 20061101
  2. MTX [Suspect]
     Indication: RHEUMATOID ARTHRITIS
     Route: 048
     Dates: start: 20030301, end: 20051001
  3. MTX [Suspect]
     Dosage: UNKNOWN
     Route: 048
     Dates: start: 20000601, end: 20030301
  4. MTX [Suspect]
     Route: 048
     Dates: start: 20060101, end: 20070301
  5. PREDNISOLONE [Concomitant]
     Indication: RHEUMATOID ARTHRITIS
     Route: 048
     Dates: start: 19950101
  6. MARCUMAR [Concomitant]
     Dosage: AS REQUIRED
     Route: 048
     Dates: start: 19950101
  7. BISOPROLOL FUMARATE [Concomitant]
     Route: 048
  8. XIPAMIDE [Concomitant]
     Dosage: 10 - 20 MG DAILY
     Route: 048
  9. MORPHINE [Concomitant]
     Dosage: AS REQUIRED 10 MG AT NIGHT TIME
     Route: 048
  10. NOVODIGAL [Concomitant]
     Route: 048
  11. OSTEOPLUS [Concomitant]
     Route: 048
  12. SPIRONOLACTONE [Concomitant]
     Route: 048
  13. SIMVASTATIN [Concomitant]
     Route: 048
  14. MOLSIDOMINE - SLOW RELEASE [Concomitant]
     Route: 048

REACTIONS (9)
  - BILE DUCT CANCER [None]
  - FEMORAL NECK FRACTURE [None]
  - HEPARIN-INDUCED THROMBOCYTOPENIA [None]
  - MULTI-ORGAN FAILURE [None]
  - PANCREATITIS NECROTISING [None]
  - PANCYTOPENIA [None]
  - PYREXIA [None]
  - SEPSIS [None]
  - VENTRICULAR FIBRILLATION [None]
